FAERS Safety Report 9464441 (Version 1)
Quarter: 2013Q3

REPORT INFORMATION
  Report Type: Spontaneous
  Country: US (occurrence: US)
  Receive Date: 20130819
  Receipt Date: 20130819
  Transmission Date: 20140515
  Serious: No
  Sender: FDA-Public Use
  Company Number: US-PFIZER INC-2013239036

PATIENT
  Age: 56 Year
  Sex: Female
  Weight: 110 kg

DRUGS (4)
  1. NEURONTIN [Suspect]
     Indication: NEURALGIA
     Dosage: 300 MG, UNK
  2. NEURONTIN [Suspect]
     Dosage: 600 MG, UNK
     Dates: end: 2013
  3. ACEBUTOLOL [Concomitant]
     Indication: HYPERTENSION
     Dosage: 200 MG, 1X/DAY
  4. METFORMIN [Concomitant]
     Indication: DIABETES MELLITUS
     Dosage: 1000 MG, 2X/DAY

REACTIONS (3)
  - Insomnia [Unknown]
  - Pain [Unknown]
  - Drug ineffective [Unknown]
